FAERS Safety Report 4909970-6 (Version None)
Quarter: 2006Q1

REPORT INFORMATION
  Report Type: 
  Country: None (occurrence: None)
  Receive Date: 20060208
  Receipt Date: 20060126
  Transmission Date: 20060701
  Serious: Yes (Other)
  Sender: FDA-Public Use
  Company Number: 2006015478

PATIENT
  Age: 57 Year
  Sex: Male

DRUGS (2)
  1. SOLU-MEDROL [Suspect]
     Indication: RESPIRATORY ARREST
     Dosage: 1 GRAM (UNK 1D), INTRAVENOUS
     Route: 042
     Dates: start: 20060119, end: 20060120
  2. SOLU-MEDROL [Suspect]
     Indication: STATUS ASTHMATICUS
     Dosage: 1 GRAM (UNK 1D), INTRAVENOUS
     Route: 042
     Dates: start: 20060119, end: 20060120

REACTIONS (7)
  - DISEASE RECURRENCE [None]
  - DYSPNOEA [None]
  - FLUSHING [None]
  - HYPERHIDROSIS [None]
  - HYPOXIC ENCEPHALOPATHY [None]
  - RESPIRATORY ARREST [None]
  - STATUS ASTHMATICUS [None]
